FAERS Safety Report 10310623 (Version 5)
Quarter: 2016Q3

REPORT INFORMATION
  Report Type: Spontaneous
  Country: US (occurrence: US)
  Receive Date: 20140717
  Receipt Date: 20160905
  Transmission Date: 20161109
  Serious: No
  Sender: FDA-Public Use
  Company Number: US-PFIZER INC-2014198316

PATIENT
  Age: 60 Year
  Sex: Female

DRUGS (1)
  1. LYRICA [Suspect]
     Active Substance: PREGABALIN
     Indication: FIBROMYALGIA
     Dosage: 50 MG, 3 TABLETS IN AM, 2 TABS AT LUNCH AND 3 TABLETS IN THE EVENING
     Route: 048
     Dates: start: 20160830

REACTIONS (1)
  - Pain [Not Recovered/Not Resolved]
